FAERS Safety Report 13775276 (Version 2)
Quarter: 2017Q3

REPORT INFORMATION
  Report Type: Report from Study
  Country: DE (occurrence: DE)
  Receive Date: 20170721
  Receipt Date: 20170724
  Transmission Date: 20171127
  Serious: Yes (Death)
  Sender: FDA-Public Use
  Company Number: DE-ASTRAZENECA-2017SE74671

PATIENT
  Age: 59 Year
  Sex: Female

DRUGS (28)
  1. MEDI4736 [Suspect]
     Active Substance: DURVALUMAB
     Indication: NON-SMALL CELL LUNG CANCER
     Dosage: 640.0MG ONCE/SINGLE ADMINISTRATION
     Route: 042
     Dates: start: 20151030, end: 20151030
  2. MEDI4736 [Suspect]
     Active Substance: DURVALUMAB
     Indication: NON-SMALL CELL LUNG CANCER
     Dosage: 640.0MG ONCE/SINGLE ADMINISTRATION
     Route: 042
     Dates: start: 20160108, end: 20160108
  3. CANDESARTAN/HCT [Concomitant]
     Indication: HYPERTENSION
     Dosage: DAILY
     Route: 048
  4. MEDI4736 [Suspect]
     Active Substance: DURVALUMAB
     Indication: NON-SMALL CELL LUNG CANCER
     Dosage: 640.0MG ONCE/SINGLE ADMINISTRATION
     Route: 042
     Dates: start: 20151127, end: 20151127
  5. MEDI4736 [Suspect]
     Active Substance: DURVALUMAB
     Indication: NON-SMALL CELL LUNG CANCER
     Dosage: 640.0MG ONCE/SINGLE ADMINISTRATION
     Route: 042
     Dates: start: 20151211, end: 20151211
  6. MEDI4736 [Suspect]
     Active Substance: DURVALUMAB
     Indication: NON-SMALL CELL LUNG CANCER
     Dosage: 640.0MG ONCE/SINGLE ADMINISTRATION
     Route: 042
     Dates: start: 20160304, end: 20160304
  7. ZOPICLONE [Concomitant]
     Active Substance: ZOPICLONE
     Indication: ADJUSTMENT DISORDER WITH DEPRESSED MOOD
     Dosage: 7.5MG AS REQUIRED
     Route: 048
     Dates: start: 201505
  8. MEDI4736 [Suspect]
     Active Substance: DURVALUMAB
     Indication: NON-SMALL CELL LUNG CANCER
     Dosage: 640.0MG ONCE/SINGLE ADMINISTRATION
     Route: 042
     Dates: start: 20151223, end: 20151223
  9. ASPIRIN. [Concomitant]
     Active Substance: ASPIRIN
     Indication: THROMBOCYTOSIS
     Route: 048
     Dates: start: 20160414
  10. MEDI4736 [Suspect]
     Active Substance: DURVALUMAB
     Indication: NON-SMALL CELL LUNG CANCER
     Dosage: 640.0MG ONCE/SINGLE ADMINISTRATION
     Route: 042
     Dates: start: 20151113, end: 20151113
  11. MEDI4736 [Suspect]
     Active Substance: DURVALUMAB
     Indication: NON-SMALL CELL LUNG CANCER
     Dosage: 640.0MG ONCE/SINGLE ADMINISTRATION
     Route: 042
     Dates: start: 20160205, end: 20160205
  12. MEDI4736 [Suspect]
     Active Substance: DURVALUMAB
     Indication: NON-SMALL CELL LUNG CANCER
     Dosage: 640.0MG ONCE/SINGLE ADMINISTRATION
     Route: 042
     Dates: start: 20160415, end: 20160415
  13. MEDI4736 [Suspect]
     Active Substance: DURVALUMAB
     Indication: NON-SMALL CELL LUNG CANCER
     Dosage: 640.0MG ONCE/SINGLE ADMINISTRATION
     Route: 042
     Dates: end: 20160518
  14. CODICOMPREN [Concomitant]
     Indication: COUGH
     Route: 048
     Dates: start: 20151102
  15. TRAMAL LONG [Concomitant]
     Active Substance: TRAMADOL
     Indication: PNEUMONIA
     Route: 048
     Dates: start: 20160516
  16. TAVOR (LORAZEPAM) [Concomitant]
     Active Substance: LORAZEPAM
     Indication: ADJUSTMENT DISORDER WITH DEPRESSED MOOD
     Route: 048
     Dates: start: 20160517
  17. MEDI4736 [Suspect]
     Active Substance: DURVALUMAB
     Indication: NON-SMALL CELL LUNG CANCER
     Dosage: 640.0MG ONCE/SINGLE ADMINISTRATION
     Route: 042
     Dates: start: 20160401, end: 20160401
  18. NOVAMINSULFON [Concomitant]
     Active Substance: METAMIZOLE
     Indication: CANCER PAIN
     Dosage: 500.0MG AS REQUIRED
     Route: 048
  19. FERRO SANOL [Concomitant]
     Active Substance: FERROUS GLYCINE SULFATE
     Indication: IRON DEFICIENCY ANAEMIA
     Route: 048
     Dates: start: 20160415
  20. MEDI4736 [Suspect]
     Active Substance: DURVALUMAB
     Indication: NON-SMALL CELL LUNG CANCER
     Dosage: 640.0MG ONCE/SINGLE ADMINISTRATION
     Route: 042
     Dates: start: 20160318, end: 20160318
  21. MOVICOL [Concomitant]
     Active Substance: POLYETHYLENE GLYCOL 3350\POTASSIUM CHLORIDE\SODIUM BICARBONATE\SODIUM CHLORIDE
     Indication: CONSTIPATION
     Route: 048
     Dates: start: 20160519
  22. MEDI4736 [Suspect]
     Active Substance: DURVALUMAB
     Indication: NON-SMALL CELL LUNG CANCER
     Dosage: 640.0MG ONCE/SINGLE ADMINISTRATION
     Route: 042
     Dates: start: 20160122, end: 20160122
  23. FOLSAN [Concomitant]
     Active Substance: FOLIC ACID
     Indication: IRON DEFICIENCY ANAEMIA
     Route: 048
     Dates: start: 20160415
  24. PANTOPRAZOLE [Concomitant]
     Active Substance: PANTOPRAZOLE
     Indication: GASTRITIS EROSIVE
     Route: 048
     Dates: start: 20160415
  25. SYMBICORT [Concomitant]
     Active Substance: BUDESONIDE\FORMOTEROL FUMARATE DIHYDRATE
     Indication: BRONCHOSPASM
     Dosage: 1 PUFF, BID
     Route: 055
     Dates: start: 20160512
  26. TRAMAL [Concomitant]
     Active Substance: TRAMADOL
     Indication: PNEUMONIA
     Dosage: 20.0GTT AS REQUIRED
     Route: 048
     Dates: start: 20160517
  27. MEDI4736 [Suspect]
     Active Substance: DURVALUMAB
     Indication: NON-SMALL CELL LUNG CANCER
     Dosage: 640.0MG ONCE/SINGLE ADMINISTRATION
     Route: 042
     Dates: start: 20160219, end: 20160219
  28. MEDI4736 [Suspect]
     Active Substance: DURVALUMAB
     Indication: NON-SMALL CELL LUNG CANCER
     Dosage: 640.0MG ONCE/SINGLE ADMINISTRATION
     Route: 042
     Dates: start: 20160429, end: 20160429

REACTIONS (1)
  - Cardiac arrest [Fatal]

NARRATIVE: CASE EVENT DATE: 20170719
